FAERS Safety Report 4340370-6 (Version None)
Quarter: 2004Q2

REPORT INFORMATION
  Report Type: 
  Country: None (occurrence: None)
  Receive Date: 20040409
  Receipt Date: 20040324
  Transmission Date: 20050107
  Serious: No
  Sender: FDA-Public Use
  Company Number: CART-10080

PATIENT
  Age: 41 Year
  Sex: Female

DRUGS (1)
  1. CARTICEL [Suspect]
     Indication: BONE DISORDER
     Dosage: 1 NA ONCE IS
     Dates: start: 20000912, end: 20000912

REACTIONS (6)
  - ABASIA [None]
  - JOINT LOCK [None]
  - OSTEOARTHRITIS [None]
  - PATELLOFEMORAL PAIN SYNDROME [None]
  - POST PROCEDURAL PAIN [None]
  - TIBIA FRACTURE [None]
